FAERS Safety Report 8403407-0 (Version None)
Quarter: 2012Q2

REPORT INFORMATION
  Report Type: 
  Country: None (occurrence: None)
  Receive Date: 20120323
  Receipt Date: 20110429
  Transmission Date: 20120825
  Serious: Yes (Hospitalization)
  Sender: FDA-Public Use
  Company Number: 163-21880-11043807

PATIENT
  Age: 60 Year
  Sex: Female
  Weight: 67.1324 kg

DRUGS (7)
  1. MORPHINE [Concomitant]
  2. PROMETHAZINE [Concomitant]
  3. FAMVIR [Concomitant]
  4. HYDROCHLOROTHIAZIDE [Concomitant]
  5. ACETAMINOPHEN [Concomitant]
  6. REVLIMID [Suspect]
     Indication: MULTIPLE MYELOMA
     Dosage: 25 MG, 14/7, PO
     Route: 048
     Dates: start: 20110412
  7. ZOFRAN [Concomitant]

REACTIONS (5)
  - CONSTIPATION [None]
  - VOMITING [None]
  - NAUSEA [None]
  - DYSGEUSIA [None]
  - DEHYDRATION [None]
